FAERS Safety Report 7245325-X (Version None)
Quarter: 2011Q1

REPORT INFORMATION
  Report Type: 
  Country: None (occurrence: None)
  Receive Date: 20110126
  Receipt Date: 20110105
  Transmission Date: 20110831
  Serious: Yes (Other)
  Sender: FDA-Public Use
  Company Number: FR-B.I. PHARMACEUTICALS,INC./RIDGEFIELD-2010-DE-00535BY

PATIENT
  Sex: Male
  Weight: 100 kg

DRUGS (2)
  1. CORTISONE [Concomitant]
     Route: 065
  2. TELMISARTAN [Suspect]
     Indication: HYPERTENSION
     Dosage: 80 MG
     Route: 048
     Dates: start: 20011030, end: 20100129

REACTIONS (4)
  - SINUSITIS [None]
  - RHINORRHOEA [None]
  - RHINITIS [None]
  - NASAL CONGESTION [None]
